FAERS Safety Report 7354652-7 (Version None)
Quarter: 2011Q1

REPORT INFORMATION
  Report Type: 
  Country: None (occurrence: None)
  Receive Date: 20110316
  Receipt Date: 20110309
  Transmission Date: 20110831
  Serious: No
  Sender: FDA-Public Use
  Company Number: US-PFIZER INC-2011052895

PATIENT
  Sex: Female

DRUGS (2)
  1. INSULIN [Concomitant]
     Dosage: UNK
  2. NORVASC [Suspect]
     Dosage: UNK

REACTIONS (4)
  - LIMB DISCOMFORT [None]
  - COUGH [None]
  - OEDEMA PERIPHERAL [None]
  - MUSCLE TIGHTNESS [None]
